FAERS Safety Report 6021357-4 (Version None)
Quarter: 2008Q4

REPORT INFORMATION
  Report Type: 
  Country: None (occurrence: None)
  Receive Date: 20081229
  Receipt Date: 20081215
  Transmission Date: 20090506
  Serious: Yes (Death, Hospitalization)
  Sender: FDA-Public Use
  Company Number: B0540531A

PATIENT
  Age: 53 Year
  Sex: Male
  Weight: 120 kg

DRUGS (5)
  1. ARIXTRA [Suspect]
     Dosage: 7.5MG PER DAY
     Route: 058
     Dates: start: 20061211, end: 20061219
  2. KARDEGIC [Suspect]
     Dosage: 1UNIT PER DAY
     Route: 048
     Dates: start: 20060201, end: 20061211
  3. PLAVIX [Suspect]
     Route: 048
     Dates: start: 20060701, end: 20061211
  4. NEXIUM [Concomitant]
     Dosage: 20MG PER DAY
     Route: 048
  5. ELISOR [Concomitant]
     Dosage: 20MG PER DAY
     Route: 048
     Dates: start: 20060301

REACTIONS (17)
  - ACUTE RESPIRATORY DISTRESS SYNDROME [None]
  - BRADYCARDIA [None]
  - BREATH SOUNDS ABNORMAL [None]
  - BRONCHOALVEOLAR LAVAGE ABNORMAL [None]
  - CEREBRAL HAEMATOMA [None]
  - CONVULSION [None]
  - FACIAL PALSY [None]
  - HAEMATOMA [None]
  - HAEMODYNAMIC INSTABILITY [None]
  - HEMIPLEGIA [None]
  - LOSS OF CONSCIOUSNESS [None]
  - MIOSIS [None]
  - OXYGEN SATURATION DECREASED [None]
  - PROTHROMBIN LEVEL DECREASED [None]
  - PULMONARY HAEMORRHAGE [None]
  - RESPIRATORY DISTRESS [None]
  - SHOCK [None]
